FAERS Safety Report 15962241 (Version 1)
Quarter: 2019Q1

REPORT INFORMATION
  Report Type: Report from Study
  Country: US (occurrence: US)
  Receive Date: 20190214
  Receipt Date: 20190214
  Transmission Date: 20190417
  Serious: Yes (Other)
  Sender: FDA-Public Use
  Company Number: US-PFIZER INC-2019063115

PATIENT
  Age: 67 Year
  Sex: Female

DRUGS (6)
  1. PROCARBAZINE [Suspect]
     Active Substance: PROCARBAZINE
     Indication: BRONCHIAL CARCINOMA
     Dosage: 1400 MG TOTAL
  2. CYCLOPHOSPHAMIDE. [Suspect]
     Active Substance: CYCLOPHOSPHAMIDE
     Indication: BRONCHIAL CARCINOMA
     Dosage: 3425 MG TOTAL
  3. VINCRISTINE SULFATE. [Suspect]
     Active Substance: VINCRISTINE SULFATE
     Indication: BRONCHIAL CARCINOMA
     Dosage: 4 MG, TOTAL
  4. METHOTREXATE SODIUM. [Suspect]
     Active Substance: METHOTREXATE SODIUM
     Indication: BRONCHIAL CARCINOMA
     Dosage: 90 MG, TOTAL
  5. DOXORUBICIN HCL [Suspect]
     Active Substance: DOXORUBICIN HYDROCHLORIDE
     Indication: BRONCHIAL CARCINOMA
     Dosage: 150 MG, TOTAL
  6. CCNU [Suspect]
     Active Substance: LOMUSTINE
     Indication: BRONCHIAL CARCINOMA
     Dosage: 80 MG, TOTAL

REACTIONS (2)
  - Pancytopenia [Not Recovered/Not Resolved]
  - Anaemia megaloblastic [Not Recovered/Not Resolved]
